FAERS Safety Report 18496935 (Version 1)
Quarter: 2020Q4

REPORT INFORMATION
  Report Type: Spontaneous
  Country: IT (occurrence: IT)
  Receive Date: 20201112
  Receipt Date: 20201112
  Transmission Date: 20210114
  Serious: Yes (Hospitalization)
  Sender: FDA-Public Use
  Company Number: IT-PFIZER INC-2020441587

PATIENT
  Age: 80 Year
  Sex: Male
  Weight: 75 kg

DRUGS (5)
  1. COUMADIN [Concomitant]
     Active Substance: WARFARIN SODIUM
     Dosage: UNK
  2. DELTACORTENE [Concomitant]
     Active Substance: PREDNISONE
     Dosage: UNK
  3. AVASTIN [Suspect]
     Active Substance: BEVACIZUMAB
     Indication: COLON CANCER
     Dosage: 562.5 MG, CYCLIC
     Route: 042
     Dates: start: 20161223, end: 20200714
  4. ZANEDIP [Concomitant]
     Active Substance: LERCANIDIPINE HYDROCHLORIDE
     Dosage: UNK
  5. ZIRABEV [Suspect]
     Active Substance: BEVACIZUMAB-BVZR
     Indication: COLON CANCER
     Dosage: 562.5 MG, FREQ TOTAL
     Route: 042
     Dates: start: 20200806, end: 20200806

REACTIONS (3)
  - Asthenia [Recovered/Resolved with Sequelae]
  - Cerebral venous thrombosis [Recovered/Resolved with Sequelae]
  - Epilepsy [Recovered/Resolved with Sequelae]

NARRATIVE: CASE EVENT DATE: 20201026
